FAERS Safety Report 17331588 (Version 1)
Quarter: 2020Q1

REPORT INFORMATION
  Report Type: Spontaneous
  Country: DE (occurrence: DE)
  Receive Date: 20200127
  Receipt Date: 20200127
  Transmission Date: 20200409
  Serious: Yes (Death, Life-Threatening, Hospitalization, Other)
  Sender: FDA-Public Use
  Company Number: DE-SA-2020SA012943

PATIENT
  Age: 44 Year
  Sex: Female

DRUGS (6)
  1. PREDNISOLONE. [Suspect]
     Active Substance: PREDNISOLONE
     Dosage: PREDNISOLONE TAPER SCHEDULE (STARTING DOSAGE OF 20 MG)
  2. PREDNISOLONE. [Suspect]
     Active Substance: PREDNISOLONE
     Dosage: 500 MG; INDUCTION DOSE
  3. BASILIXIMAB [Suspect]
     Active Substance: BASILIXIMAB
     Indication: IMMUNOSUPPRESSANT DRUG THERAPY
     Dosage: POD 0 AND 4
     Route: 042
  4. PREDNISOLONE. [Suspect]
     Active Substance: PREDNISOLONE
     Indication: IMMUNOSUPPRESSANT DRUG THERAPY
     Dosage: PREDNISOLONE TAPER SCHEDULE (STARTING DOSAGE OF 20 MG)
  5. TACROLIMUS. [Suspect]
     Active Substance: TACROLIMUS
     Indication: IMMUNOSUPPRESSANT DRUG THERAPY
     Dosage: TROUGH LEVEL IN THE RANGE OF 4-6 NG/ML
  6. HYDROCORTISONE. [Suspect]
     Active Substance: HYDROCORTISONE
     Indication: IMMUNOSUPPRESSANT DRUG THERAPY
     Dosage: INFUSION
     Route: 041

REACTIONS (16)
  - Somnolence [Fatal]
  - Cytomegalovirus infection [Recovered/Resolved]
  - Gastroenteritis [Recovered/Resolved]
  - Eye infection fungal [Recovering/Resolving]
  - Bronchopulmonary aspergillosis [Fatal]
  - Central nervous system lesion [Fatal]
  - Cerebral aspergillosis [Fatal]
  - Brain abscess [Fatal]
  - Iliac artery occlusion [Fatal]
  - Enterococcal infection [Unknown]
  - Arterial thrombosis [Fatal]
  - Pneumonia [Fatal]
  - Disease progression [Fatal]
  - Partial seizures [Fatal]
  - Visual impairment [Recovering/Resolving]
  - Septic encephalopathy [Fatal]

NARRATIVE: CASE EVENT DATE: 2015
